FAERS Safety Report 25523017 (Version 2)
Quarter: 2025Q3

REPORT INFORMATION
  Report Type: Spontaneous
  Country: CN (occurrence: CN)
  Receive Date: 20250707
  Receipt Date: 20250810
  Transmission Date: 20251020
  Serious: Yes (Hospitalization)
  Sender: ALEXION PHARMACEUTICALS
  Company Number: CN-ASTRAZENECA-202507CHN000822CN

PATIENT
  Age: 68 Year
  Sex: Male
  Weight: 55 kg

DRUGS (5)
  1. DAPAGLIFLOZIN [Suspect]
     Active Substance: DAPAGLIFLOZIN
     Indication: Diabetes mellitus
     Dosage: 10 MILLIGRAM, QD
     Dates: start: 20250615, end: 20250618
  2. ETORICOXIB [Concomitant]
     Active Substance: ETORICOXIB
     Indication: Back pain
     Dosage: 120 MILLIGRAM, QD
     Dates: start: 20250612, end: 20250622
  3. ROSUVASTATIN CALCIUM [Concomitant]
     Active Substance: ROSUVASTATIN CALCIUM
     Indication: Coronary artery disease
     Dosage: 5 MILLIGRAM, QD
     Dates: start: 20250612, end: 20250622
  4. EPERISONE [Concomitant]
     Active Substance: EPERISONE
     Indication: Back pain
     Dosage: 50 MILLIGRAM, TID
     Dates: start: 20250612, end: 20250620
  5. CLOPIDOGREL BISULFATE [Concomitant]
     Active Substance: CLOPIDOGREL BISULFATE
     Indication: Coronary artery disease
     Dosage: 75 MILLIGRAM, QD
     Dates: start: 20250612, end: 20250622

REACTIONS (2)
  - Rash [Recovering/Resolving]
  - Oedema [Recovering/Resolving]

NARRATIVE: CASE EVENT DATE: 20250618
